FAERS Safety Report 8957550 (Version 3)
Quarter: 2013Q1

REPORT INFORMATION
  Report Type: Spontaneous
  Country: US (occurrence: US)
  Receive Date: 20121211
  Receipt Date: 20130221
  Transmission Date: 20140127
  Serious: Yes (Hospitalization)
  Sender: FDA-Public Use
  Company Number: US-FRI-1000040837

PATIENT
  Age: 50 Year
  Sex: Male
  Weight: 59 kg

DRUGS (12)
  1. TEFLARO [Suspect]
     Indication: POST PROCEDURAL COMPLICATION
     Dosage: 1200 MG
     Route: 042
     Dates: start: 20120826, end: 20120915
  2. TEFLARO [Suspect]
     Indication: SOFT TISSUE INFECTION
  3. TYLENOL [Concomitant]
     Route: 048
  4. GABAPENTIN [Concomitant]
     Dosage: 1800 MG
     Dates: start: 20120906
  5. HEPARIN [Concomitant]
     Indication: CENTRAL VENOUS CATHETERISATION
     Dosage: 60 UNITS
  6. HCTZ [Concomitant]
     Dosage: 25 MG
     Route: 048
  7. HYDROMORPHONE [Concomitant]
     Dosage: 12 MG
     Route: 048
     Dates: start: 20120906
  8. HYDROMORPHONE [Concomitant]
     Route: 048
  9. LISINOPRIL [Concomitant]
     Dosage: 40 MG
     Route: 048
  10. NICOTINE PATCH [Concomitant]
     Route: 062
     Dates: start: 20120906
  11. MULTIVITAMIN [Concomitant]
  12. SALINE FLUSHES [Concomitant]

REACTIONS (5)
  - Rash erythematous [Recovered/Resolved]
  - Skin disorder [Recovered/Resolved]
  - Hypoaesthesia oral [Recovered/Resolved]
  - Tongue exfoliation [Recovered/Resolved]
  - Sepsis [Recovered/Resolved]
